FAERS Safety Report 9988510 (Version 1)
Quarter: 2014Q1

REPORT INFORMATION
  Report Type: Spontaneous
  Country: US (occurrence: US)
  Receive Date: 20140310
  Receipt Date: 20140310
  Transmission Date: 20141002
  Serious: No
  Sender: FDA-Public Use
  Company Number: US-BIOGENIDEC-2014BI017790

PATIENT
  Age: 46 Year
  Sex: Female
  Weight: 95 kg

DRUGS (10)
  1. TECFIDERA [Suspect]
     Indication: MULTIPLE SCLEROSIS
     Route: 048
     Dates: start: 20140207
  2. TECFIDERA [Suspect]
     Indication: MULTIPLE SCLEROSIS
     Route: 048
     Dates: start: 201402
  3. SUMATRIPTAN [Concomitant]
  4. GABAPENTIN [Concomitant]
  5. AMANTADINE [Concomitant]
  6. NUVIGIL [Concomitant]
  7. PROPRANOLOL [Concomitant]
  8. ADVIL [Concomitant]
  9. BIOTIN [Concomitant]
  10. ECOTRIN [Concomitant]

REACTIONS (2)
  - Fatigue [Unknown]
  - Burning sensation [Unknown]
